FAERS Safety Report 6621540-0 (Version None)
Quarter: 2010Q1

REPORT INFORMATION
  Report Type: 
  Country: None (occurrence: None)
  Receive Date: 20100309
  Receipt Date: 20100225
  Transmission Date: 20100710
  Serious: Yes (Hospitalization)
  Sender: FDA-Public Use
  Company Number: DE-WYE-H13829710

PATIENT
  Age: 74 Year
  Sex: Female

DRUGS (13)
  1. PANTOZOL [Interacting]
     Indication: REFLUX OESOPHAGITIS
     Route: 048
     Dates: start: 20090601
  2. PANTOZOL [Interacting]
     Indication: HIATUS HERNIA
  3. MIRTAZAPINE [Interacting]
     Indication: LEUKOENCEPHALOPATHY
     Route: 048
     Dates: start: 20091028, end: 20100105
  4. LARIAM [Interacting]
     Indication: LEUKOENCEPHALOPATHY
     Route: 048
     Dates: start: 20091028, end: 20091231
  5. PREDNISOLONE [Concomitant]
     Indication: HASHIMOTO'S ENCEPHALOPATHY
     Route: 048
     Dates: start: 20091001
  6. ISCOVER [Suspect]
     Indication: CORONARY ARTERY DISEASE
     Route: 048
  7. CALCILAC [Concomitant]
     Indication: OSTEOPOROSIS PROPHYLAXIS
     Route: 048
  8. SPIRONOLACTONE [Concomitant]
     Indication: HYPERTENSION
     Route: 048
  9. KARVEA [Concomitant]
     Indication: HYPERTENSION
     Route: 048
     Dates: start: 20090601
  10. ACTRAPID HUMAN [Concomitant]
     Indication: DIABETES MELLITUS
     Dosage: DF-4/12/8
     Route: 058
  11. TORSEMIDE [Suspect]
     Indication: RENAL FAILURE CHRONIC
     Route: 048
     Dates: start: 20090601
  12. ACETYLSALICYLIC ACID [Suspect]
     Indication: CORONARY ARTERY DISEASE
     Route: 048
     Dates: start: 20090901
  13. DIGITOXIN INJ [Concomitant]
     Indication: ATRIAL FIBRILLATION
     Route: 048
     Dates: start: 20090601

REACTIONS (2)
  - DRUG INTERACTION [None]
  - PANCYTOPENIA [None]
